FAERS Safety Report 7753480-8 (Version None)
Quarter: 2011Q3

REPORT INFORMATION
  Report Type: 
  Country: None (occurrence: None)
  Receive Date: 20110915
  Receipt Date: 20110815
  Transmission Date: 20111222
  Serious: Yes (Hospitalization, Other)
  Sender: FDA-Public Use
  Company Number: PHEH2011US02837

PATIENT
  Sex: Female
  Weight: 87.7 kg

DRUGS (4)
  1. FOLIC ACID [Concomitant]
     Indication: ANAEMIA
     Dosage: 1 MG, QD
     Dates: start: 19920819
  2. EXJADE [Suspect]
     Indication: HAEMOSIDEROSIS
     Dosage: 1000 MG, QD
     Route: 048
     Dates: start: 20070117
  3. METHADONE HCL [Concomitant]
     Indication: PAIN
     Dosage: 60 MG, BID
     Dates: start: 20060705
  4. HYDROXYUREA [Concomitant]
     Indication: PROPHYLAXIS
     Dosage: 1500 MG, QD

REACTIONS (10)
  - PNEUMONIA [None]
  - VOMITING [None]
  - DIARRHOEA [None]
  - ARTHRALGIA [None]
  - PYREXIA [None]
  - ABDOMINAL DISCOMFORT [None]
  - SICKLE CELL ANAEMIA WITH CRISIS [None]
  - NAUSEA [None]
  - CATHETER SITE ERYTHEMA [None]
  - GASTROENTERITIS [None]
